FAERS Safety Report 18975542 (Version 1)
Quarter: 2021Q1

REPORT INFORMATION
  Report Type: Report from Study
  Country: DE (occurrence: DE)
  Receive Date: 20210305
  Receipt Date: 20210305
  Transmission Date: 20210420
  Serious: Yes (Other)
  Sender: FDA-Public Use
  Company Number: DE-UCBSA-2021009619

PATIENT

DRUGS (11)
  1. LEVETIRACETAM. [Suspect]
     Active Substance: LEVETIRACETAM
     Indication: EPILEPSY
     Dosage: 500 MG
     Dates: start: 201803
  2. CETIRIZINE [Suspect]
     Active Substance: CETIRIZINE HYDROCHLORIDE
     Indication: PRODUCT USED FOR UNKNOWN INDICATION
     Dosage: UNK
  3. FRISIUM [Concomitant]
     Active Substance: CLOBAZAM
     Indication: SEIZURE
     Dosage: UNK
  4. FOSTER [PIROXICAM] [Concomitant]
     Indication: PRODUCT USED FOR UNKNOWN INDICATION
     Dosage: UNK
  5. OXAZEPAM. [Concomitant]
     Active Substance: OXAZEPAM
     Dosage: REDUCING DOSE
     Dates: start: 201801
  6. OXAZEPAM. [Concomitant]
     Active Substance: OXAZEPAM
     Dosage: UNK
     Dates: start: 201810, end: 20200331
  7. LAMOTRIGINE. [Concomitant]
     Active Substance: LAMOTRIGINE
     Indication: PRODUCT USED FOR UNKNOWN INDICATION
     Dosage: UNK
     Dates: start: 2016
  8. SALBUTAMOL [Concomitant]
     Active Substance: ALBUTEROL
     Indication: PRODUCT USED FOR UNKNOWN INDICATION
     Dosage: UNK
  9. MAGNESIUM [Concomitant]
     Active Substance: MAGNESIUM
     Indication: PRODUCT USED FOR UNKNOWN INDICATION
     Dosage: UNK
  10. OXAZEPAM. [Concomitant]
     Active Substance: OXAZEPAM
     Indication: PRODUCT USED FOR UNKNOWN INDICATION
     Dosage: UNK
     Dates: start: 2016, end: 2018
  11. OMEGA 3 FLAX SEED OIL [Concomitant]
     Indication: PRODUCT USED FOR UNKNOWN INDICATION
     Dosage: UNK

REACTIONS (19)
  - Headache [Unknown]
  - Ocular discomfort [Unknown]
  - Seizure [Unknown]
  - Asthma [Unknown]
  - Ageusia [Unknown]
  - Bedridden [Unknown]
  - Jaw disorder [Unknown]
  - Drug withdrawal syndrome [Unknown]
  - Back pain [Unknown]
  - Depression [Unknown]
  - Head discomfort [Unknown]
  - Pain in extremity [Unknown]
  - Chest pain [Unknown]
  - Mood swings [Unknown]
  - Eye pain [Unknown]
  - Feeling of body temperature change [Unknown]
  - Respiratory depression [Unknown]
  - Ear pain [Unknown]
  - Fatigue [Unknown]
